FAERS Safety Report 5845233-2 (Version None)
Quarter: 2008Q3

REPORT INFORMATION
  Report Type: 
  Country: None (occurrence: None)
  Receive Date: 20080814
  Receipt Date: 20080812
  Transmission Date: 20090109
  Serious: Yes (Hospitalization)
  Sender: FDA-Public Use
  Company Number: B0529710A

PATIENT
  Age: 51 Year
  Sex: Female

DRUGS (4)
  1. COMBIVIR [Suspect]
     Indication: HIV INFECTION
     Dosage: 1TAB TWICE PER DAY
     Route: 048
     Dates: start: 20031010, end: 20080704
  2. TENOFOVIR [Suspect]
     Indication: HIV INFECTION
     Dosage: 300MG PER DAY
     Route: 048
     Dates: start: 20031010
  3. STAVUDINE [Concomitant]
  4. LAMIVUDINE [Concomitant]

REACTIONS (5)
  - CHILLS [None]
  - COUGH [None]
  - HYPERHIDROSIS [None]
  - NEUTROPENIC SEPSIS [None]
  - PYREXIA [None]
